FAERS Safety Report 14690797 (Version 3)
Quarter: 2018Q2

REPORT INFORMATION
  Report Type: Spontaneous
  Country: US (occurrence: US)
  Receive Date: 20180328
  Receipt Date: 20180411
  Transmission Date: 20180711
  Serious: Yes (Hospitalization, Other)
  Sender: FDA-Public Use
  Company Number: US-PFIZER INC-2018119512

PATIENT
  Age: 74 Year
  Sex: Male
  Weight: 111.57 kg

DRUGS (4)
  1. ATORVASTATIN CALCIUM. [Suspect]
     Active Substance: ATORVASTATIN CALCIUM
     Indication: BLOOD CHOLESTEROL ABNORMAL
     Dosage: 10 MG, 1X/DAY
     Route: 048
     Dates: start: 2007
  2. ATORVASTATIN CALCIUM. [Suspect]
     Active Substance: ATORVASTATIN CALCIUM
     Dosage: 10 MG, 1X/DAY
     Route: 048
     Dates: start: 20160411
  3. ATORVASTATIN CALCIUM. [Suspect]
     Active Substance: ATORVASTATIN CALCIUM
     Dosage: 40 MG, 1X/DAY
     Route: 048
     Dates: start: 20141226
  4. ATORVASTATIN CALCIUM. [Suspect]
     Active Substance: ATORVASTATIN CALCIUM
     Dosage: 40 MG, 1X/DAY (1/2 TABLET BY MOUTH AT BED TIME DAILY FOR A 40MG TOTAL DAILY DOSAGE)
     Route: 048
     Dates: start: 201710, end: 20180312

REACTIONS (20)
  - Urinary retention [Unknown]
  - Prostatomegaly [Not Recovered/Not Resolved]
  - Cataract operation [Unknown]
  - Myalgia [Not Recovered/Not Resolved]
  - Urinary tract infection [Recovered/Resolved]
  - Fall [Unknown]
  - Bladder spasm [Recovered/Resolved]
  - Arthralgia [Not Recovered/Not Resolved]
  - Cardiovascular disorder [Unknown]
  - Bladder discomfort [Unknown]
  - Bladder pain [Unknown]
  - Dysstasia [Not Recovered/Not Resolved]
  - Retinal operation [Unknown]
  - Muscular weakness [Not Recovered/Not Resolved]
  - Muscle spasms [Not Recovered/Not Resolved]
  - Muscle fatigue [Not Recovered/Not Resolved]
  - Ventricular tachycardia [Unknown]
  - Visual impairment [Unknown]
  - Orthostatic hypotension [Not Recovered/Not Resolved]
  - Pulmonary mass [Unknown]

NARRATIVE: CASE EVENT DATE: 201705
